FAERS Safety Report 5682892-1 (Version None)
Quarter: 2008Q1

REPORT INFORMATION
  Report Type: 
  Country: None (occurrence: None)
  Receive Date: 20080325
  Receipt Date: 20080314
  Transmission Date: 20080703
  Serious: Yes (Other)
  Sender: FDA-Public Use
  Company Number: 2008006532

PATIENT
  Age: 6 Year
  Sex: Male
  Weight: 25.4 kg

DRUGS (1)
  1. ZYRTEC ALLERGY [Suspect]
     Indication: HYPERSENSITIVITY
     Dosage: 1/2 A TEASPOON ONCE, ORAL
     Route: 048
     Dates: start: 20080314, end: 20080314

REACTIONS (1)
  - EYE ROLLING [None]
